FAERS Safety Report 5413154-5 (Version None)
Quarter: 2007Q3

REPORT INFORMATION
  Report Type: 
  Country: None (occurrence: None)
  Receive Date: 20070810
  Receipt Date: 20070803
  Transmission Date: 20080115
  Serious: Yes (Other)
  Sender: FDA-Public Use
  Company Number: TAP2007Q01033

PATIENT
  Sex: Female

DRUGS (1)
  1. LUPRON DEPOT [Suspect]
     Indication: DRUG USE FOR UNKNOWN INDICATION
     Dosage: 1 IN 1 M, INTRAMUSCULAR
     Route: 030
     Dates: start: 20061101, end: 20061201

REACTIONS (1)
  - INTRACRANIAL ANEURYSM [None]
